FAERS Safety Report 16098938 (Version 16)
Quarter: 2022Q1

REPORT INFORMATION
  Report Type: Spontaneous
  Country: US (occurrence: US)
  Receive Date: 20190321
  Receipt Date: 20220323
  Transmission Date: 20220423
  Serious: No
  Sender: FDA-Public Use
  Company Number: US-PFIZER INC-2019118803

PATIENT
  Age: 25 Year
  Sex: Male

DRUGS (8)
  1. SOMAVERT [Suspect]
     Active Substance: PEGVISOMANT
     Indication: Acromegaly
     Dosage: 10 MG, 1X/DAY
     Route: 058
     Dates: start: 201812, end: 202001
  2. SOMAVERT [Suspect]
     Active Substance: PEGVISOMANT
     Dosage: 10 MG, DAILY
     Route: 058
     Dates: start: 20200518
  3. SOMAVERT [Suspect]
     Active Substance: PEGVISOMANT
     Dosage: 30 MG,  THREE TIMES WEEKLY
     Route: 058
     Dates: start: 20200518
  4. SOMAVERT [Suspect]
     Active Substance: PEGVISOMANT
     Dosage: 30 MG,  THREE TIMES WEEKLY
     Route: 058
     Dates: start: 202008
  5. SOMAVERT [Suspect]
     Active Substance: PEGVISOMANT
     Dosage: 30 MG,  THREE TIMES WEEKLY
     Route: 058
     Dates: start: 202202
  6. LANREOTIDE [Concomitant]
     Active Substance: LANREOTIDE
     Dosage: 90 MG, CYCLIC (EVERY 28 DAYS)
     Route: 058
     Dates: start: 201910
  7. LANREOTIDE [Concomitant]
     Active Substance: LANREOTIDE
     Dosage: 120 MG, CYCLIC (EVERY 28 DAYS)
     Dates: start: 202008
  8. LANREOTIDE [Concomitant]
     Active Substance: LANREOTIDE
     Dosage: 128 MG, CYCLIC (EVERY 28 DAYS)
     Dates: start: 202008

REACTIONS (6)
  - Therapeutic product effect incomplete [Unknown]
  - Headache [Recovering/Resolving]
  - Fatigue [Recovering/Resolving]
  - Insomnia [Not Recovered/Not Resolved]
  - Bone pain [Recovered/Resolved]
  - Off label use [Unknown]
